FAERS Safety Report 24156221 (Version 1)
Quarter: 2024Q3

REPORT INFORMATION
  Report Type: Spontaneous
  Country: PT (occurrence: PT)
  Receive Date: 20240731
  Receipt Date: 20240731
  Transmission Date: 20241016
  Serious: Yes (Death, Hospitalization)
  Sender: Steriscience PTE
  Company Number: PT-STERISCIENCE B.V.-2024-ST-001116

PATIENT
  Age: 87 Year
  Sex: Female

DRUGS (3)
  1. MEROPENEM [Suspect]
     Active Substance: MEROPENEM
     Indication: Burkholderia cepacia complex infection
     Dosage: UNK
     Route: 065
  2. COTRIMOXAZOLE [Concomitant]
     Active Substance: SULFAMETHOXAZOLE\TRIMETHOPRIM
     Indication: Burkholderia cepacia complex infection
     Dosage: UNK
     Route: 065
  3. PIPERACILLIN SODIUM\TAZOBACTAM SODIUM [Concomitant]
     Active Substance: PIPERACILLIN SODIUM\TAZOBACTAM SODIUM
     Indication: Evidence based treatment
     Dosage: UNK
     Route: 065

REACTIONS (1)
  - Drug resistance [Fatal]
